FAERS Safety Report 10246666 (Version 3)
Quarter: 2014Q3

REPORT INFORMATION
  Report Type: Spontaneous
  Country: US (occurrence: US)
  Receive Date: 20140619
  Receipt Date: 20140925
  Transmission Date: 20150326
  Serious: Yes (Hospitalization, Other)
  Sender: FDA-Public Use
  Company Number: US-PFIZER INC-2014159864

PATIENT
  Age: 40 Year
  Sex: Female
  Weight: 52 kg

DRUGS (5)
  1. DEPO-PROVERA [Suspect]
     Active Substance: MEDROXYPROGESTERONE ACETATE
     Indication: HORMONE REPLACEMENT THERAPY
     Dosage: UNK
     Dates: start: 1997, end: 2007
  2. SOMA [Concomitant]
     Active Substance: CARISOPRODOL
     Dosage: 350 MG, 3X/DAY
     Route: 048
  3. CHANTIX [Concomitant]
     Active Substance: VARENICLINE TARTRATE
     Dosage: 0.5MG STARTING MONTH PACK AS DIRECTED
  4. CHANTIX [Concomitant]
     Active Substance: VARENICLINE TARTRATE
     Dosage: 1MG CONTINUING MONTH PACK AS DIRECTED
  5. NORCO [Concomitant]
     Active Substance: ACETAMINOPHEN\HYDROCODONE BITARTRATE
     Dosage: 10 TO 325MG ONE TO TWO TABLET EVERY SIX HOURS
     Route: 048

REACTIONS (1)
  - Invasive ductal breast carcinoma [Unknown]

NARRATIVE: CASE EVENT DATE: 20110711
